FAERS Safety Report 5772412-5 (Version None)
Quarter: 2008Q2

REPORT INFORMATION
  Report Type: 
  Country: None (occurrence: None)
  Receive Date: 20080613
  Receipt Date: 20080605
  Transmission Date: 20081010
  Serious: Yes (Hospitalization)
  Sender: FDA-Public Use
  Company Number: US-AVENTIS-200719036GDDC

PATIENT
  Age: 65 Year
  Sex: Male

DRUGS (16)
  1. TAXOTERE [Suspect]
     Indication: NON-SMALL CELL LUNG CANCER
     Route: 042
     Dates: start: 20070530, end: 20070530
  2. CETUXIMAB [Suspect]
     Indication: NON-SMALL CELL LUNG CANCER
     Dosage: DOSE: UNK
     Dates: start: 20070314, end: 20070314
  3. GEMCITABINE [Suspect]
     Indication: NON-SMALL CELL LUNG CANCER
     Route: 042
     Dates: start: 20070515, end: 20070530
  4. LASIX [Concomitant]
  5. POTASSIUM CHLORIDE [Concomitant]
  6. ATENOLOL [Concomitant]
  7. METOLAZONE [Concomitant]
  8. PHENERGAN [Concomitant]
  9. LORTAB [Concomitant]
  10. DEXAMETHASONE TAB [Concomitant]
     Dates: end: 20070623
  11. LEVOTHYROXINE SODIUM [Concomitant]
  12. FLUCONAZOLE [Concomitant]
     Dates: end: 20070626
  13. FERROUS SULFATE TAB [Concomitant]
     Dates: end: 20070626
  14. METRONIDAZOLE HCL [Concomitant]
     Dates: end: 20070626
  15. LANTUS [Concomitant]
  16. HUMALOG [Concomitant]

REACTIONS (4)
  - ASTHENIA [None]
  - FALL [None]
  - HYPERGLYCAEMIA [None]
  - HYPONATRAEMIA [None]
